FAERS Safety Report 19119950 (Version 1)
Quarter: 2021Q2

REPORT INFORMATION
  Report Type: Report from Study
  Country: None (occurrence: BR)
  Receive Date: 20210412
  Receipt Date: 20210412
  Transmission Date: 20210717
  Serious: Yes (Disabling, Other)
  Sender: FDA-Public Use
  Company Number: BR-ABBVIE-21K-020-3849546-00

PATIENT
  Age: 56 Year
  Sex: Female
  Weight: 65 kg

DRUGS (1)
  1. HUMIRA [Suspect]
     Active Substance: ADALIMUMAB
     Indication: RHEUMATOID ARTHRITIS
     Route: 058

REACTIONS (16)
  - Product administered at inappropriate site [Unknown]
  - Limb mass [Not Recovered/Not Resolved]
  - Joint range of motion decreased [Unknown]
  - Feeling hot [Recovering/Resolving]
  - Spondylitis [Unknown]
  - Pain in extremity [Recovering/Resolving]
  - Thyroidectomy [Unknown]
  - Mobility decreased [Recovering/Resolving]
  - Pain [Unknown]
  - Hypertension [Unknown]
  - Musculoskeletal stiffness [Unknown]
  - Pain [Recovered/Resolved]
  - Pain [Recovered/Resolved]
  - Glaucoma [Unknown]
  - Neck pain [Unknown]
  - Rheumatoid arthritis [Unknown]

NARRATIVE: CASE EVENT DATE: 20210321
